FAERS Safety Report 8439661-9 (Version None)
Quarter: 2012Q2

REPORT INFORMATION
  Report Type: 
  Country: None (occurrence: None)
  Receive Date: 20120615
  Receipt Date: 20120606
  Transmission Date: 20120825
  Serious: Yes (Death)
  Sender: FDA-Public Use
  Company Number: US-SANOFI-AVENTIS-2012SA040219

PATIENT
  Age: 59 Year
  Sex: Female

DRUGS (7)
  1. DEXAMETHASONE [Concomitant]
  2. FENTANYL [Concomitant]
  3. HYDROMORPHONE [Concomitant]
  4. LORAZEPAM [Concomitant]
  5. PLAVIX [Suspect]
     Indication: CORONARY ARTERY DISEASE
     Dates: start: 20100129
  6. PLAVIX [Suspect]
     Indication: STENT PLACEMENT
     Dates: start: 20100129
  7. PEPCID [Concomitant]

REACTIONS (1)
  - PANCREATIC CARCINOMA STAGE II [None]
